FAERS Safety Report 5924743-3 (Version None)
Quarter: 2008Q4

REPORT INFORMATION
  Report Type: 
  Country: None (occurrence: None)
  Receive Date: 20081017
  Receipt Date: 20081003
  Transmission Date: 20090506
  Serious: Yes (Other)
  Sender: FDA-Public Use
  Company Number: 238726J08USA

PATIENT
  Age: 48 Year
  Sex: Female
  Weight: 70 kg

DRUGS (3)
  1. REBIF [Suspect]
     Indication: MULTIPLE SCLEROSIS
     Dosage: 44 MCG, 3 IN 1 WEEKS, SUBCUTANEOUS
     Route: 058
     Dates: start: 20070514
  2. SINGULAIR [Concomitant]
  3. DETROL [Concomitant]

REACTIONS (8)
  - ASTHENIA [None]
  - BACTERIAL INFECTION [None]
  - BALANCE DISORDER [None]
  - FATIGUE [None]
  - FUNGAL INFECTION [None]
  - MUSCULAR WEAKNESS [None]
  - SINUSITIS [None]
  - VISION BLURRED [None]
